FAERS Safety Report 7151538-8 (Version None)
Quarter: 2010Q4

REPORT INFORMATION
  Report Type: 
  Country: None (occurrence: None)
  Receive Date: 20101210
  Receipt Date: 20101207
  Transmission Date: 20110411
  Serious: Yes (Life-Threatening, Other)
  Sender: FDA-Public Use
  Company Number: US-PFIZER INC-2010166415

PATIENT
  Sex: Female
  Weight: 91.156 kg

DRUGS (1)
  1. AROMASIN [Suspect]
     Indication: BREAST CANCER
     Dosage: 25 MG, 1X/DAY
     Route: 048
     Dates: start: 20080801, end: 20081201

REACTIONS (2)
  - BRAIN NEOPLASM [None]
  - DYSPHAGIA [None]
